FAERS Safety Report 17278505 (Version 6)
Quarter: 2022Q4

REPORT INFORMATION
  Report Type: Spontaneous
  Country: US (occurrence: US)
  Receive Date: 20200116
  Receipt Date: 20221202
  Transmission Date: 20230113
  Serious: Yes (Other)
  Sender: FDA-Public Use
  Company Number: US-PFIZER INC-2020021298

PATIENT
  Age: 60 Year
  Sex: Male
  Weight: 79 kg

DRUGS (4)
  1. DILANTIN [Suspect]
     Active Substance: PHENYTOIN
     Indication: Seizure
     Dosage: 2 DOSAGE FORM, BID (2 DF, 2X/DAY)
     Route: 048
  2. DILANTIN [Suspect]
     Active Substance: PHENYTOIN
     Dosage: 2 DOSAGE FORM, BID (STOP DATE: 22-MAY-2023)
     Route: 048
     Dates: start: 20221123
  3. DILANTIN [Suspect]
     Active Substance: PHENYTOIN
     Dosage: 2 DOSAGE FORM, BID (200 MG TWICE A DAY)
     Route: 048
     Dates: start: 20220508, end: 20221121
  4. LYRICA [Concomitant]
     Active Substance: PREGABALIN
     Indication: Seizure
     Dosage: 200 MILLIGRAM, BID (200 MG, 2X/DAY REGIMEN DOSE UNIT: MILLIGRAM)
     Route: 065
     Dates: start: 2014

REACTIONS (1)
  - Seizure [Not Recovered/Not Resolved]

NARRATIVE: CASE EVENT DATE: 20200101
